FAERS Safety Report 6439801-7 (Version None)
Quarter: 2009Q4

REPORT INFORMATION
  Report Type: 
  Country: None (occurrence: None)
  Receive Date: 20091113
  Receipt Date: 20091104
  Transmission Date: 20100525
  Serious: Yes (Disabling)
  Sender: FDA-Public Use
  Company Number: SG-MERCK-0911SGP00005

PATIENT
  Age: 72 Year
  Sex: Female

DRUGS (18)
  1. FOSAMAX [Suspect]
     Indication: OSTEOPOROSIS
     Route: 048
     Dates: start: 20060201, end: 20070701
  2. ENALAPRIL MALEATE [Concomitant]
     Route: 065
  3. SIMVASTATIN [Concomitant]
     Route: 065
  4. ASPIRIN [Concomitant]
     Route: 065
  5. OMEPRAZOLE [Concomitant]
     Route: 065
  6. GABAPENTIN [Concomitant]
     Route: 065
  7. FERROUS GLUCONATE [Concomitant]
     Route: 065
  8. CALCIUM CARBONATE [Concomitant]
     Route: 065
  9. VITAMIN D (UNSPECIFIED) [Concomitant]
     Route: 065
  10. PREDNISOLONE [Concomitant]
     Indication: SYSTEMIC LUPUS ERYTHEMATOSUS
     Route: 048
     Dates: start: 20041201, end: 20060101
  11. PREDNISOLONE [Concomitant]
     Route: 048
     Dates: start: 20060101
  12. PREDNISOLONE [Concomitant]
     Route: 048
     Dates: start: 19670101
  13. PREDNISOLONE [Concomitant]
     Route: 048
     Dates: start: 20070101
  14. PREDNISOLONE [Concomitant]
     Indication: TENOSYNOVITIS
     Route: 048
     Dates: start: 20041201, end: 20060101
  15. PREDNISOLONE [Concomitant]
     Route: 048
     Dates: start: 20060101
  16. PREDNISOLONE [Concomitant]
     Route: 048
     Dates: start: 19670101
  17. PREDNISOLONE [Concomitant]
     Route: 048
     Dates: start: 20070101
  18. AZATHIOPRINE [Concomitant]
     Indication: SYSTEMIC LUPUS ERYTHEMATOSUS
     Route: 048
     Dates: start: 20070101

REACTIONS (3)
  - CREATININE RENAL CLEARANCE ABNORMAL [None]
  - DRUG INEFFECTIVE [None]
  - PUBIS FRACTURE [None]
